FAERS Safety Report 20623641 (Version 1)
Quarter: 2022Q1

REPORT INFORMATION
  Report Type: Spontaneous
  Country: SA (occurrence: SA)
  Receive Date: 20220322
  Receipt Date: 20220322
  Transmission Date: 20220424
  Serious: Yes (Other)
  Sender: FDA-Public Use
  Company Number: SA-LUPIN PHARMACEUTICALS INC.-2022-04018

PATIENT
  Sex: Male

DRUGS (8)
  1. RIFAMPIN [Suspect]
     Active Substance: RIFAMPIN
     Indication: Staphylococcal sepsis
     Dosage: 10 MILLIGRAM/KILOGRAM, QD
     Route: 065
  2. RIFAMPIN [Suspect]
     Active Substance: RIFAMPIN
     Indication: Endocarditis staphylococcal
  3. OXACILLIN [Concomitant]
     Active Substance: OXACILLIN SODIUM
     Indication: Staphylococcal sepsis
     Dosage: 50 MILLIGRAM/KILOGRAM, QD (EVERY 6 HOURS)
     Route: 065
  4. OXACILLIN [Concomitant]
     Active Substance: OXACILLIN SODIUM
     Indication: Endocarditis staphylococcal
  5. GENTAMICIN [Concomitant]
     Active Substance: GENTAMICIN
     Indication: Staphylococcal sepsis
     Dosage: 5 MILLIGRAM/KILOGRAM, QD
     Route: 065
  6. GENTAMICIN [Concomitant]
     Active Substance: GENTAMICIN
     Indication: Endocarditis staphylococcal
  7. CEFOTAXIME [Concomitant]
     Active Substance: CEFOTAXIME SODIUM
     Indication: Staphylococcal sepsis
     Dosage: 50 MILLIGRAM/KILOGRAM, QD
     Route: 065
  8. CEFOTAXIME [Concomitant]
     Active Substance: CEFOTAXIME SODIUM
     Indication: Endocarditis staphylococcal

REACTIONS (1)
  - Hepatotoxicity [Unknown]
